FAERS Safety Report 7773022-0 (Version None)
Quarter: 2011Q3

REPORT INFORMATION
  Report Type: 
  Country: None (occurrence: None)
  Receive Date: 20110922
  Receipt Date: 20110504
  Transmission Date: 20111222
  Serious: No
  Sender: FDA-Public Use
  Company Number: US-ASTRAZENECA-2011SE26572

PATIENT
  Age: 38 Year
  Sex: Female
  Weight: 85.7 kg

DRUGS (6)
  1. PROZAC [Concomitant]
  2. KLONOPIN [Concomitant]
  3. NEURONTIN [Concomitant]
  4. SEROQUEL [Suspect]
     Indication: INSOMNIA
     Route: 048
     Dates: start: 20110401
  5. SEROQUEL [Suspect]
     Indication: SCHIZOPHRENIA
     Route: 048
     Dates: start: 20110401
  6. SEROQUEL [Suspect]
     Indication: BIPOLAR DISORDER
     Route: 048
     Dates: start: 20110401

REACTIONS (5)
  - AGITATION [None]
  - TREMOR [None]
  - INSOMNIA [None]
  - OFF LABEL USE [None]
  - DRUG EFFECT DECREASED [None]
